FAERS Safety Report 8154663 (Version 4)
Quarter: 2013Q4

REPORT INFORMATION
  Report Type: Spontaneous
  Country: US (occurrence: US)
  Receive Date: 20110923
  Receipt Date: 20131202
  Transmission Date: 20140711
  Serious: Yes (Hospitalization)
  Sender: FDA-Public Use
  Company Number: US-GLAXOSMITHKLINE-A0915618A

PATIENT
  Age: 69 Year
  Sex: Female
  Weight: 87.3 kg

DRUGS (1)
  1. AVANDIA [Suspect]
     Indication: DIABETES MELLITUS
     Dosage: 4MG PER DAY
     Route: 048
     Dates: start: 200005, end: 200710

REACTIONS (11)
  - Atrial fibrillation [Not Recovered/Not Resolved]
  - Hypertrophic cardiomyopathy [Unknown]
  - Angina pectoris [Unknown]
  - Coronary artery disease [Unknown]
  - Dyspnoea [Unknown]
  - Hypertension [Unknown]
  - Hyperlipidaemia [Unknown]
  - Sleep apnoea syndrome [Unknown]
  - Cardiac failure congestive [Unknown]
  - Cardiac pacemaker insertion [Unknown]
  - Arrhythmia [Unknown]
